FAERS Safety Report 4313106-2 (Version None)
Quarter: 2004Q1

REPORT INFORMATION
  Report Type: 
  Country: None (occurrence: None)
  Receive Date: 20040303
  Receipt Date: 20040223
  Transmission Date: 20041129
  Serious: Yes (Hospitalization)
  Sender: FDA-Public Use
  Company Number: 2004011749

PATIENT
  Age: 84 Year
  Sex: Female

DRUGS (1)
  1. LISTERINE ANTISEPTIC MOUTHWASH (EUCALYPTOL, MENTHOL, METHYL SALICYLATE [Suspect]
     Indication: DENTAL CARE
     Dosage: ORAL TOPICAL
     Dates: start: 20040213, end: 20040213

REACTIONS (3)
  - DYSPNOEA [None]
  - LUNG INFECTION [None]
  - PNEUMONIA ASPIRATION [None]
